FAERS Safety Report 19264280 (Version 1)
Quarter: 2021Q2

REPORT INFORMATION
  Report Type: Spontaneous
  Country: US (occurrence: US)
  Receive Date: 20210516
  Receipt Date: 20210516
  Transmission Date: 20210717
  Serious: Yes (Life-Threatening, Disabling, Other)
  Sender: FDA-Public Use
  Company Number: None

PATIENT
  Age: 46 Year
  Sex: Female
  Weight: 72 kg

DRUGS (2)
  1. IC TERBINAFINE HCL 250 MG TABLET [Suspect]
     Active Substance: TERBINAFINE HYDROCHLORIDE
     Indication: ONYCHOMYCOSIS
     Dosage: ?          QUANTITY:1 TABLET(S);?
     Route: 048
     Dates: start: 20210325, end: 20210410
  2. LEVOTYROXINE [Concomitant]

REACTIONS (6)
  - Alanine aminotransferase increased [None]
  - Constipation [None]
  - Abnormal faeces [None]
  - Headache [None]
  - Liver injury [None]
  - Vomiting [None]

NARRATIVE: CASE EVENT DATE: 20210410
